FAERS Safety Report 9007041 (Version 1)
Quarter: 2013Q1

REPORT INFORMATION
  Report Type: Spontaneous
  Country: US (occurrence: US)
  Receive Date: 20130110
  Receipt Date: 20130110
  Transmission Date: 20140127
  Serious: Yes (Other)
  Sender: FDA-Public Use
  Company Number: US-BAYER-2013-002579

PATIENT
  Age: 34 Year
  Sex: Female
  Weight: 59 kg

DRUGS (1)
  1. ALKA SELTZER [Suspect]
     Dosage: 4-6 TABLETS, UNK
     Route: 048
     Dates: start: 200805, end: 20121231

REACTIONS (6)
  - Exposure during pregnancy [None]
  - Hyperchlorhydria [None]
  - Drug dependence [None]
  - Incorrect drug administration duration [None]
  - Wrong technique in drug usage process [None]
  - Pigmentation disorder [Not Recovered/Not Resolved]
